FAERS Safety Report 8537669-6 (Version None)
Quarter: 2012Q3

REPORT INFORMATION
  Report Type: 
  Country: None (occurrence: None)
  Receive Date: 20120725
  Receipt Date: 20120720
  Transmission Date: 20120928
  Serious: Yes (Other)
  Sender: FDA-Public Use
  Company Number: PHEH2012US009421

PATIENT
  Sex: Female
  Weight: 56.689 kg

DRUGS (6)
  1. FLEXERIL [Concomitant]
     Indication: MUSCLE SPASTICITY
     Dosage: 5 MG, QD
     Route: 048
  2. DETROL [Concomitant]
     Indication: HYPERTONIC BLADDER
     Dosage: 4 MG, QD
     Route: 048
  3. PRISTIQ [Concomitant]
     Indication: DEPRESSION
     Dosage: 50 MG, QD
     Route: 048
  4. GILENYA [Suspect]
     Indication: RELAPSING-REMITTING MULTIPLE SCLEROSIS
     Dosage: 0.5 MG, QD
     Route: 048
     Dates: start: 20111004
  5. BACLOFEN [Concomitant]
     Indication: MUSCLE SPASTICITY
     Dosage: 20 MG, TID
     Route: 048
  6. ELMIRON [Concomitant]
     Dosage: 100 MG, QD

REACTIONS (4)
  - VOMITING [None]
  - URINARY TRACT INFECTION [None]
  - CYSTITIS [None]
  - NAUSEA [None]
